FAERS Safety Report 5847429-2 (Version None)
Quarter: 2008Q3

REPORT INFORMATION
  Report Type: 
  Country: None (occurrence: None)
  Receive Date: 20080815
  Receipt Date: 20080811
  Transmission Date: 20090109
  Serious: Yes (Death, Hospitalization)
  Sender: FDA-Public Use
  Company Number: US-MERCK-0808USA01258

PATIENT
  Age: 66 Year
  Sex: Male

DRUGS (2)
  1. JANUVIA [Suspect]
     Route: 048
     Dates: start: 20070601, end: 20070701
  2. METFORMIN [Concomitant]
     Route: 065

REACTIONS (3)
  - BILE DUCT CANCER [None]
  - METASTATIC NEOPLASM [None]
  - PANCREATIC CARCINOMA [None]
